FAERS Safety Report 16968590 (Version 2)
Quarter: 2020Q1

REPORT INFORMATION
  Report Type: Report from Study
  Country: FR (occurrence: FR)
  Receive Date: 20191029
  Receipt Date: 20200114
  Transmission Date: 20200409
  Serious: Yes (Other)
  Sender: FDA-Public Use
  Company Number: FR-ROCHE-2453268

PATIENT
  Age: 56 Year
  Sex: Male
  Weight: 61.2 kg

DRUGS (5)
  1. ATEZOLIZUMAB. [Suspect]
     Active Substance: ATEZOLIZUMAB
     Indication: SQUAMOUS CELL CARCINOMA OF HEAD AND NECK
     Dosage: ON 14/OCT/2019, AT 13:54, RECEIVED MOST RECENT DOSE (1200 MG) OF ATEZOLIZUMAB PRIOR TO EVENT ONSET
     Route: 042
     Dates: start: 20190812
  2. PARACETAMOL [Concomitant]
     Active Substance: ACETAMINOPHEN
     Route: 065
     Dates: start: 20191106, end: 20191106
  3. RO6874281 (FAP IL2V MAB) [Suspect]
     Active Substance: SIMLUKAFUSP ALFA
     Indication: SQUAMOUS CELL CARCINOMA OF HEAD AND NECK
     Dosage: ON 14/OCT/2019, AT 15;59, RECEIVED MOST RECENT DOSE (10 MG) OF RO6874281 PRIOR TO EVENT ONSET
     Route: 042
     Dates: start: 20190812
  4. PARACETAMOL [Concomitant]
     Active Substance: ACETAMINOPHEN
     Indication: PAIN
     Route: 065
     Dates: start: 20190923, end: 20190923
  5. PARACETAMOL [Concomitant]
     Active Substance: ACETAMINOPHEN
     Indication: PREMEDICATION
     Route: 065
     Dates: start: 20191014, end: 20191014

REACTIONS (1)
  - Lymphopenia [Recovered/Resolved]

NARRATIVE: CASE EVENT DATE: 20191015
